FAERS Safety Report 23103071 (Version 1)
Quarter: 2023Q4

REPORT INFORMATION
  Report Type: Spontaneous
  Country: US (occurrence: None)
  Receive Date: 20231023
  Receipt Date: 20231023
  Transmission Date: 20240110
  Serious: Yes (Disabling)
  Sender: FDA-Public Use
  Company Number: None

PATIENT
  Age: 61 Year
  Sex: Male
  Weight: 113.4 kg

DRUGS (1)
  1. PLAVIX [Suspect]
     Active Substance: CLOPIDOGREL BISULFATE
     Dosage: FREQUENCY : ONCE;?
     Route: 013
     Dates: start: 20190404, end: 20190404

REACTIONS (3)
  - Respiratory distress [None]
  - Dyspnoea exertional [None]
  - Product use issue [None]

NARRATIVE: CASE EVENT DATE: 20190404
